FAERS Safety Report 8336487-1 (Version None)
Quarter: 2012Q2

REPORT INFORMATION
  Report Type: 
  Country: None (occurrence: None)
  Receive Date: 20120501
  Receipt Date: 20120416
  Transmission Date: 20120825
  Serious: Yes (Other)
  Sender: FDA-Public Use
  Company Number: IN-1191747

PATIENT
  Age: 42 Year
  Sex: Male

DRUGS (6)
  1. ATROPINE [Suspect]
     Indication: KERATITIS FUNGAL
     Dosage: (THREE TIMES A DAY OPHTHALMIC)
     Route: 047
  2. VIGAMOX [Suspect]
     Indication: KERATITIS FUNGAL
     Dosage: (OPHTHALMIC)
     Route: 047
  3. NATAMET 5 % OPHTHALMIC SUSPENSION (TOPICAL NATAMYCIN EYE DROPS (NATAME [Suspect]
     Indication: KERATITIS FUNGAL
     Dosage: (OPHTHALMIC)
  4. IOPAR TABLETS (IOPAR 250 MG) (NOT SPECIFIED) [Suspect]
     Indication: INTRAOCULAR PRESSURE INCREASED
     Dosage: (250 MG QD OD ORAL)
     Route: 048
  5. FLUCONAZOLE [Suspect]
     Indication: KERATITIS FUNGAL
     Dosage: (150 MG QD)
  6. FLUCONAZOLE [Suspect]
     Indication: KERATITIS FUNGAL
     Dosage: (HOURLY OPHTHALMIC)
     Route: 047

REACTIONS (5)
  - DRUG INEFFECTIVE [None]
  - FLAT ANTERIOR CHAMBER OF EYE [None]
  - EYE PAIN [None]
  - TREATMENT NONCOMPLIANCE [None]
  - CORNEAL PERFORATION [None]
